FAERS Safety Report 9133730 (Version 1)
Quarter: 2013Q1

REPORT INFORMATION
  Report Type: Spontaneous
  Country: US (occurrence: CA)
  Receive Date: 20130302
  Receipt Date: 20130302
  Transmission Date: 20140127
  Serious: No
  Sender: FDA-Public Use
  Company Number: CA-ENDO PHARMACEUTICALS INC.-FRVA20110002

PATIENT
  Age: 23 Year
  Sex: Female

DRUGS (2)
  1. FROVA [Suspect]
     Indication: MIGRAINE
     Dosage: 2.5 MG
     Route: 048
     Dates: start: 20110117, end: 20110117
  2. HYDROMORPHONE [Concomitant]
     Indication: FIBROMYALGIA
     Dosage: UNKNOWN
     Route: 065

REACTIONS (5)
  - Trismus [Unknown]
  - Oromandibular dystonia [Not Recovered/Not Resolved]
  - Drooling [Not Recovered/Not Resolved]
  - Facial spasm [Not Recovered/Not Resolved]
  - Speech disorder [Not Recovered/Not Resolved]
